FAERS Safety Report 18265101 (Version 1)
Quarter: 2020Q3

REPORT INFORMATION
  Report Type: Spontaneous
  Country: US (occurrence: US)
  Receive Date: 20200915
  Receipt Date: 20200915
  Transmission Date: 20201103
  Serious: Yes (Hospitalization, Other)
  Sender: FDA-Public Use
  Company Number: US-AUROBINDO-AUR-APL-2020-047488

PATIENT
  Age: 30 Month
  Sex: Male

DRUGS (9)
  1. DIVALPROEX [Suspect]
     Active Substance: DIVALPROEX SODIUM
     Indication: EPILEPSY WITH MYOCLONIC-ATONIC SEIZURES
  2. CLOBAZAM. [Suspect]
     Active Substance: CLOBAZAM
     Indication: FEBRILE CONVULSION
     Dosage: UNK
     Route: 065
  3. LEVETIRACETAM. [Suspect]
     Active Substance: LEVETIRACETAM
     Indication: EPILEPSY WITH MYOCLONIC-ATONIC SEIZURES
  4. TOPIRAMATE. [Suspect]
     Active Substance: TOPIRAMATE
     Indication: EPILEPSY WITH MYOCLONIC-ATONIC SEIZURES
  5. CLOBAZAM. [Suspect]
     Active Substance: CLOBAZAM
     Indication: EPILEPSY WITH MYOCLONIC-ATONIC SEIZURES
  6. LEVETIRACETAM. [Suspect]
     Active Substance: LEVETIRACETAM
     Indication: FEBRILE CONVULSION
     Dosage: UNK
     Route: 065
  7. DIVALPROEX [Suspect]
     Active Substance: DIVALPROEX SODIUM
     Indication: FEBRILE CONVULSION
     Dosage: UNK
     Route: 065
  8. TOPIRAMATE. [Suspect]
     Active Substance: TOPIRAMATE
     Indication: FEBRILE CONVULSION
     Dosage: UNK
     Route: 065
  9. PHENYTOIN. [Concomitant]
     Active Substance: PHENYTOIN
     Indication: SEIZURE
     Dosage: UNK
     Route: 065

REACTIONS (1)
  - Drug ineffective [Unknown]
